FAERS Safety Report 4670060-1 (Version None)
Quarter: 2005Q2

REPORT INFORMATION
  Report Type: 
  Country: None (occurrence: None)
  Receive Date: 20050523
  Receipt Date: 20050505
  Transmission Date: 20051028
  Serious: Yes (Other)
  Sender: FDA-Public Use
  Company Number: IMP_0847_2005

PATIENT
  Age: 38 Year
  Sex: Female
  Weight: 66.2252 kg

DRUGS (1)
  1. BUPROPION [Suspect]
     Indication: POST-TRAUMATIC STRESS DISORDER
     Dosage: 1 TAB QDAY PO
     Route: 048

REACTIONS (6)
  - ANXIETY [None]
  - CRYING [None]
  - FEELING ABNORMAL [None]
  - PARANOIA [None]
  - PHARMACEUTICAL PRODUCT COMPLAINT [None]
  - SUICIDAL IDEATION [None]
